FAERS Safety Report 17840238 (Version 1)
Quarter: 2020Q2

REPORT INFORMATION
  Report Type: Spontaneous
  Country: JP (occurrence: JP)
  Receive Date: 20200529
  Receipt Date: 20200529
  Transmission Date: 20200714
  Serious: Yes (Disabling)
  Sender: FDA-Public Use
  Company Number: JP-ASTRAZENECA-2020SE67355

PATIENT
  Age: 75 Year
  Sex: Male

DRUGS (2)
  1. FASENRA [Suspect]
     Active Substance: BENRALIZUMAB
     Indication: ASTHMA
     Route: 058
     Dates: end: 20200326
  2. FASENRA [Suspect]
     Active Substance: BENRALIZUMAB
     Indication: ASTHMA
     Dosage: 30 MG, ONCE EVERY 4 WEEKS FOR THE FIRST THREE DOSES
     Route: 058
     Dates: start: 20180717

REACTIONS (1)
  - Progressive supranuclear palsy [Not Recovered/Not Resolved]

NARRATIVE: CASE EVENT DATE: 20200401
